FAERS Safety Report 9214848 (Version 4)
Quarter: 2013Q2

REPORT INFORMATION
  Report Type: Spontaneous
  Country: JP (occurrence: JP)
  Receive Date: 20130405
  Receipt Date: 20130607
  Transmission Date: 20140414
  Serious: Yes (Other)
  Sender: FDA-Public Use
  Company Number: JP-JHP PHARMACEUTICALS, LLC-JHP201300184

PATIENT
  Sex: Male

DRUGS (2)
  1. DANTRIUM [Suspect]
     Indication: CHEST DISCOMFORT
     Dosage: 50 MG, DAILY
     Route: 048
     Dates: end: 2013
  2. DANTRIUM [Suspect]
     Dosage: 75 MG, DAILY
     Route: 048
     Dates: start: 2013

REACTIONS (2)
  - Pneumonia aspiration [Unknown]
  - Off label use [Unknown]
